FAERS Safety Report 6125527 (Version 23)
Quarter: 2013Q4

REPORT INFORMATION
  Report Type: Spontaneous
  Country: US (occurrence: US)
  Receive Date: 20060912
  Receipt Date: 20131216
  Transmission Date: 20140711
  Serious: Yes (Disabling, Other)
  Sender: FDA-Public Use
  Company Number: PHEH2006US11230

PATIENT
  Age: 40 Year
  Sex: Male
  Weight: 66.67 kg

DRUGS (28)
  1. AREDIA [Suspect]
     Indication: METASTASES TO BONE
     Dosage: 90 MG, QMO
     Route: 041
     Dates: start: 20030204, end: 20031118
  2. ZOMETA [Suspect]
     Indication: METASTASES TO BONE
     Route: 042
     Dates: start: 2002, end: 200302
  3. ZOMETA [Suspect]
     Route: 042
     Dates: start: 20031209, end: 200410
  4. ZOMETA [Suspect]
     Dosage: 4 MG, QMO
     Route: 041
     Dates: start: 20050601, end: 20050803
  5. ZOMETA [Suspect]
     Route: 041
     Dates: start: 20050803, end: 20060406
  6. CELEBREX [Concomitant]
     Dosage: 200 MG, BID
  7. PREDNISONE [Concomitant]
     Dosage: 60 MG, UNK
  8. VALIUM [Concomitant]
     Dosage: 10 MG, PRN
     Route: 041
  9. CLINDAMYCIN HYDROCHLORIDE [Concomitant]
     Dosage: 150 MG, BID
     Route: 048
  10. PREVACID [Concomitant]
     Dosage: 1 DF, QD
     Route: 048
  11. XANAX [Concomitant]
     Dosage: 5 MG, PRN
     Route: 048
  12. ROXANOL [Concomitant]
  13. AMBIEN [Concomitant]
     Dosage: 5 MG, PRN
     Route: 048
  14. DECADRON                                /CAN/ [Concomitant]
     Route: 048
  15. PAXIL [Concomitant]
     Route: 048
  16. DOLOBID [Concomitant]
     Dosage: 4 MG, QD
     Route: 048
  17. PHENERGAN ^AVENTIS PHARMA^ [Concomitant]
     Dosage: 12.5 MG, PRN
     Route: 048
  18. VICODIN [Concomitant]
     Route: 048
  19. ZOFRAN [Concomitant]
     Dosage: 32 MG, PRN
     Route: 048
  20. VINCRISTINE [Concomitant]
     Dosage: 2 MG, UNK
     Route: 041
  21. LYRICA [Concomitant]
     Dosage: 75 MG, BID
     Route: 048
  22. AVELOX [Concomitant]
     Dosage: 400 MG, QD
     Route: 048
  23. NEURONTIN [Concomitant]
     Dosage: 100 MG, TID
     Route: 048
  24. KYTRIL [Concomitant]
     Route: 041
  25. CEPHALEXIN [Concomitant]
     Dosage: 250 MG, QD
     Route: 048
  26. MIRALAX [Concomitant]
     Dosage: 1 MG, PRN
     Route: 048
  27. DURAGESIC [Concomitant]
  28. MILK OF MAGNESIA [Concomitant]

REACTIONS (106)
  - Cerebrovascular accident [Unknown]
  - Rib fracture [Unknown]
  - Phlebitis superficial [Unknown]
  - Depression [Unknown]
  - Leukopenia [Unknown]
  - Osteonecrosis of jaw [Not Recovered/Not Resolved]
  - General physical health deterioration [Not Recovered/Not Resolved]
  - Pain [Not Recovered/Not Resolved]
  - Anxiety [Not Recovered/Not Resolved]
  - Anhedonia [Not Recovered/Not Resolved]
  - Oral disorder [Not Recovered/Not Resolved]
  - Impaired healing [Not Recovered/Not Resolved]
  - Weight decreased [Not Recovered/Not Resolved]
  - Swelling [Not Recovered/Not Resolved]
  - Paraesthesia [Not Recovered/Not Resolved]
  - Bone disorder [Not Recovered/Not Resolved]
  - Osteomyelitis [Not Recovered/Not Resolved]
  - Inflammation [Not Recovered/Not Resolved]
  - Lymphadenopathy [Not Recovered/Not Resolved]
  - Oral pain [Not Recovered/Not Resolved]
  - Primary sequestrum [Not Recovered/Not Resolved]
  - Eating disorder [Unknown]
  - Fatigue [Unknown]
  - Myalgia [Unknown]
  - Back pain [Unknown]
  - Headache [Unknown]
  - Nausea [Unknown]
  - Pyrexia [Unknown]
  - Asthenia [Unknown]
  - Diarrhoea [Unknown]
  - Dysuria [Unknown]
  - Insomnia [Unknown]
  - Night sweats [Unknown]
  - Erectile dysfunction [Unknown]
  - Abdominal pain upper [Unknown]
  - Drug screen positive [Unknown]
  - Hyponatraemia [Unknown]
  - Bronchitis [Unknown]
  - Dehydration [Unknown]
  - Humerus fracture [Unknown]
  - Chest wall mass [Unknown]
  - Neoplasm recurrence [Unknown]
  - Plasma cell myeloma [Unknown]
  - Bone lesion [Unknown]
  - Breast mass [Unknown]
  - Mass [Unknown]
  - Gynaecomastia [Unknown]
  - Arthritis [Unknown]
  - Intervertebral disc protrusion [Unknown]
  - Vertebral foraminal stenosis [Unknown]
  - Sciatica [Unknown]
  - Hypoaesthesia [Unknown]
  - Muscular weakness [Unknown]
  - Monoclonal gammopathy [Unknown]
  - Periarthritis [Unknown]
  - Head injury [Unknown]
  - Fall [Unknown]
  - Gastrooesophageal reflux disease [Unknown]
  - Muscle strain [Unknown]
  - Radiculopathy [Unknown]
  - Constipation [Unknown]
  - Dizziness [Unknown]
  - Decreased appetite [Unknown]
  - Sleep disorder [Unknown]
  - Bone pain [Unknown]
  - Vision blurred [Unknown]
  - Foot fracture [Unknown]
  - Injury [Unknown]
  - Hand fracture [Unknown]
  - Disability [Unknown]
  - Pulmonary fibrosis [Unknown]
  - Dental caries [Unknown]
  - Tooth fracture [Unknown]
  - Venous insufficiency [Unknown]
  - Osteosclerosis [Unknown]
  - Lung infiltration [Unknown]
  - Spinal osteoarthritis [Unknown]
  - Pulmonary bulla [Unknown]
  - Benign bone neoplasm [Unknown]
  - Chronic obstructive pulmonary disease [Unknown]
  - Ligament sprain [Unknown]
  - Sensory disturbance [Unknown]
  - Tenderness [Unknown]
  - Pain in extremity [Unknown]
  - Musculoskeletal chest pain [Unknown]
  - Chills [Unknown]
  - Musculoskeletal pain [Unknown]
  - Cough [Unknown]
  - Intervertebral disc disorder [Unknown]
  - Pneumonia [Unknown]
  - Compression fracture [Unknown]
  - Hyporeflexia [Unknown]
  - Lumbar vertebral fracture [Unknown]
  - Pulmonary pneumatocele [Unknown]
  - Spinal deformity [Unknown]
  - Intervertebral disc space narrowing [Unknown]
  - Spinal compression fracture [Unknown]
  - Bone marrow oedema [Unknown]
  - Hypercalcaemia [Unknown]
  - Osteoporosis [Unknown]
  - Oropharyngeal pain [Unknown]
  - Hyperhidrosis [Unknown]
  - Cardiac failure congestive [Unknown]
  - Vomiting [Unknown]
  - Chest pain [Unknown]
  - Arthralgia [Unknown]
